FAERS Safety Report 6300066-8 (Version None)
Quarter: 2009Q3

REPORT INFORMATION
  Report Type: 
  Country: None (occurrence: None)
  Receive Date: 20090803
  Receipt Date: 20090720
  Transmission Date: 20100115
  Serious: Yes (Death)
  Sender: FDA-Public Use
  Company Number: ADR8142009

PATIENT
  Age: 79 Year
  Sex: Male

DRUGS (7)
  1. ALENDRONIC ACID (MFR: UNKNOWN) [Suspect]
     Indication: OSTEOPOROTIC FRACTURE
     Dosage: 70 MG/WEEK ORAL
     Route: 048
     Dates: start: 20050525, end: 20070501
  2. ADCAL-D3 [Concomitant]
  3. BENDROFLUMETHIAZIDE [Concomitant]
  4. LANSOPRAZOLE [Concomitant]
  5. ACETAMINOPHEN [Concomitant]
  6. QUININE SULPHATE [Concomitant]
  7. RAMIPRIL [Concomitant]

REACTIONS (1)
  - OESOPHAGEAL ADENOCARCINOMA [None]
